FAERS Safety Report 8304592-1 (Version None)
Quarter: 2012Q2

REPORT INFORMATION
  Report Type: 
  Country: None (occurrence: None)
  Receive Date: 20120423
  Receipt Date: 20120416
  Transmission Date: 20120825
  Serious: Yes (Hospitalization)
  Sender: FDA-Public Use
  Company Number: US-BAYER-2011-069193

PATIENT
  Age: 24 Year
  Sex: Female
  Weight: 72.562 kg

DRUGS (4)
  1. MICRONOR [Concomitant]
     Indication: ORAL CONTRACEPTION
     Dosage: UNK
     Dates: start: 20070901, end: 20071001
  2. YAZ [Suspect]
     Dosage: UNK
     Route: 048
     Dates: start: 20061201, end: 20071201
  3. RANITIDINE [Concomitant]
     Dosage: 150 MG, QD
     Route: 048
  4. FERROUS SULFATE TAB [Concomitant]
     Dosage: 325 MG, QD
     Route: 048

REACTIONS (3)
  - GALLBLADDER DISORDER [None]
  - MENTAL DISORDER [None]
  - CHOLECYSTITIS CHRONIC [None]
